FAERS Safety Report 11473899 (Version 1)
Quarter: 2015Q3

REPORT INFORMATION
  Report Type: Spontaneous
  Country: US (occurrence: US)
  Receive Date: 20150908
  Receipt Date: 20150908
  Transmission Date: 20151125
  Serious: No
  Sender: FDA-Public Use
  Company Number: US-JAZZ-2013-US-000185

PATIENT
  Age: 50 Year
  Sex: Female

DRUGS (2)
  1. XYREM [Suspect]
     Active Substance: SODIUM OXYBATE
     Dosage: 3 G, BID
     Route: 048
     Dates: start: 20130817
  2. XYREM [Suspect]
     Active Substance: SODIUM OXYBATE
     Indication: NARCOLEPSY
     Dosage: 2.25 G, UNK
     Route: 048
     Dates: start: 20130806, end: 201308

REACTIONS (20)
  - Feeling of body temperature change [Unknown]
  - Dyspnoea [Unknown]
  - Abdominal pain [Not Recovered/Not Resolved]
  - Insomnia [Unknown]
  - Dizziness [Not Recovered/Not Resolved]
  - Slow speech [Unknown]
  - Balance disorder [Unknown]
  - Palpitations [Not Recovered/Not Resolved]
  - Nausea [Unknown]
  - Disturbance in attention [Unknown]
  - Haematuria [Not Recovered/Not Resolved]
  - Back pain [Not Recovered/Not Resolved]
  - Aphasia [Unknown]
  - Paraesthesia [Unknown]
  - Limb discomfort [Unknown]
  - Muscle twitching [Unknown]
  - Vision blurred [Not Recovered/Not Resolved]
  - Confusional state [Unknown]
  - Pain in extremity [Not Recovered/Not Resolved]
  - Headache [Unknown]

NARRATIVE: CASE EVENT DATE: 201308
